FAERS Safety Report 6652440-8 (Version None)
Quarter: 2010Q1

REPORT INFORMATION
  Report Type: 
  Country: None (occurrence: None)
  Receive Date: 20100325
  Receipt Date: 20100315
  Transmission Date: 20100710
  Serious: Yes (Hospitalization)
  Sender: FDA-Public Use
  Company Number: US-MERCK-1003USA02227

PATIENT
  Age: 83 Year
  Sex: Female

DRUGS (4)
  1. FOSAMAX [Suspect]
     Indication: OSTEOPOROSIS
     Route: 048
     Dates: start: 19950101, end: 20090315
  2. FOSAMAX [Suspect]
     Indication: OSTEITIS DEFORMANS
     Route: 048
     Dates: start: 19950101, end: 20090315
  3. LOPRESSOR [Concomitant]
     Route: 065
  4. LASIX [Concomitant]
     Route: 065

REACTIONS (4)
  - BODY HEIGHT DECREASED [None]
  - FALL [None]
  - FEMUR FRACTURE [None]
  - PELVIC FRACTURE [None]
